FAERS Safety Report 6252913-6 (Version None)
Quarter: 2009Q2

REPORT INFORMATION
  Report Type: 
  Country: None (occurrence: None)
  Receive Date: 20090629
  Receipt Date: 20090629
  Transmission Date: 20091009
  Serious: Yes (Life-Threatening, Hospitalization, Other)
  Sender: FDA-Public Use
  Company Number: None

PATIENT
  Age: 39 Year
  Sex: Male
  Weight: 88.4514 kg

DRUGS (1)
  1. CLONAZEPAM [Suspect]
     Indication: CONVULSION
     Dosage: 1MG TWICE DAILY PO
     Route: 048
     Dates: start: 20090625, end: 20090627

REACTIONS (3)
  - INCORRECT DOSE ADMINISTERED [None]
  - MOOD ALTERED [None]
  - SUICIDE ATTEMPT [None]
